FAERS Safety Report 9774610 (Version 6)
Quarter: 2014Q2

REPORT INFORMATION
  Report Type: Report from Study
  Country: FR (occurrence: FR)
  Receive Date: 20131220
  Receipt Date: 20140521
  Transmission Date: 20141212
  Serious: Yes (Hospitalization, Other)
  Sender: FDA-Public Use
  Company Number: FR-JNJFOC-20131208453

PATIENT
  Age: 13 Year
  Sex: Female
  Weight: 36.3 kg

DRUGS (5)
  1. REMICADE [Suspect]
     Indication: CROHN^S DISEASE
     Route: 042
     Dates: start: 20120208
  2. REMICADE [Suspect]
     Indication: CROHN^S DISEASE
     Route: 042
  3. REMICADE [Suspect]
     Indication: CROHN^S DISEASE
     Route: 042
     Dates: start: 20140108
  4. REMICADE [Suspect]
     Indication: CROHN^S DISEASE
     Route: 042
     Dates: start: 20110824
  5. BUDESONIDE [Concomitant]
     Route: 065

REACTIONS (3)
  - Anal fistula [Recovered/Resolved with Sequelae]
  - Anal abscess [Recovered/Resolved]
  - Malnutrition [Recovered/Resolved]
